FAERS Safety Report 22780569 (Version 12)
Quarter: 2025Q4

REPORT INFORMATION
  Report Type: Spontaneous
  Country: EU (occurrence: EU)
  Receive Date: 20230803
  Receipt Date: 20251002
  Transmission Date: 20260118
  Serious: Yes (Hospitalization, Other)
  Sender: CELLTRION
  Company Number: None

PATIENT

DRUGS (41)
  1. INFLIXIMAB [Suspect]
     Active Substance: INFLIXIMAB
     Indication: Autoimmune colitis
     Dosage: 5 MG/KG
     Route: 042
  2. INFLIXIMAB [Suspect]
     Active Substance: INFLIXIMAB
     Indication: Colitis
     Dosage: 5 MG/KG  (DAY 10)
  3. INFLIXIMAB [Suspect]
     Active Substance: INFLIXIMAB
     Indication: Immune-mediated enterocolitis
     Dosage: UNK
     Route: 065
  4. INFLIXIMAB [Suspect]
     Active Substance: INFLIXIMAB
     Indication: Colitis ulcerative
     Dosage: UNK
     Route: 065
  5. INFLIXIMAB [Suspect]
     Active Substance: INFLIXIMAB
     Dosage: SECOND IDENTICAL DOSE
  6. INFLIXIMAB [Suspect]
     Active Substance: INFLIXIMAB
     Dosage: UNK
     Route: 065
  7. INFLIXIMAB [Suspect]
     Active Substance: INFLIXIMAB
     Dosage: UNKNOWN
     Route: 065
  8. INFLIXIMAB [Suspect]
     Active Substance: INFLIXIMAB
     Dosage: 5 MG/KG, 2 DOSES
     Route: 042
     Dates: start: 2021
  9. MYCOPHENOLATE MOFETIL [Suspect]
     Active Substance: MYCOPHENOLATE MOFETIL
     Indication: Colitis
     Dosage: 1000 MG, 2X/DAY, HIGH DOSE
     Route: 048
  10. MYCOPHENOLATE MOFETIL [Suspect]
     Active Substance: MYCOPHENOLATE MOFETIL
     Indication: Autoimmune colitis
     Dosage: 500 MG, 2X/DAY, DAY 20
     Route: 048
  11. MYCOPHENOLATE MOFETIL [Suspect]
     Active Substance: MYCOPHENOLATE MOFETIL
     Indication: Colitis
     Dosage: UNK
     Route: 065
  12. MYCOPHENOLATE MOFETIL [Suspect]
     Active Substance: MYCOPHENOLATE MOFETIL
     Indication: Colitis ulcerative
     Dosage: 1000 MG, BID
     Route: 048
  13. MYCOPHENOLATE MOFETIL [Suspect]
     Active Substance: MYCOPHENOLATE MOFETIL
     Indication: Immune-mediated enterocolitis
     Dosage: 500MG, BID/EVERY 12 HOURS
     Route: 048
     Dates: start: 2021
  14. MYCOPHENOLATE MOFETIL [Suspect]
     Active Substance: MYCOPHENOLATE MOFETIL
     Dosage: 1000 MG, HIGH DOSE/EVERY 12 HRS
     Route: 048
     Dates: start: 2021
  15. MYCOPHENOLATE MOFETIL [Suspect]
     Active Substance: MYCOPHENOLATE MOFETIL
     Dosage: 500MG, BID/EVERY 12 HOURS
     Route: 048
     Dates: start: 2021
  16. MYCOPHENOLATE MOFETIL [Suspect]
     Active Substance: MYCOPHENOLATE MOFETIL
     Indication: Immune-mediated enterocolitis
     Dosage: 500 MG, EVERY 0.5 DAY
     Route: 048
     Dates: start: 2021
  17. MYCOPHENOLATE MOFETIL [Suspect]
     Active Substance: MYCOPHENOLATE MOFETIL
     Indication: Colitis ulcerative
     Dosage: 1000 MG, EVERY 0.5 DAY / HIGH DOSE
     Route: 048
     Dates: start: 2021
  18. MYCOPHENOLATE MOFETIL [Suspect]
     Active Substance: MYCOPHENOLATE MOFETIL
     Indication: Autoimmune colitis
  19. BECLOMETHASONE DIPROPIONATE [Suspect]
     Active Substance: BECLOMETHASONE DIPROPIONATE
     Indication: Colitis ulcerative
     Dosage: 5 MG, BID/EVERY 12 HOURS / DEGRESSIVE DOSE
     Route: 061
     Dates: start: 2021
  20. BECLOMETHASONE DIPROPIONATE [Suspect]
     Active Substance: BECLOMETHASONE DIPROPIONATE
     Indication: Autoimmune colitis
     Dosage: 5 MG, EVERY 0.5 DAY / DEGRESSIVE DOSE
     Route: 061
     Dates: start: 2021
  21. BECLOMETHASONE DIPROPIONATE [Suspect]
     Active Substance: BECLOMETHASONE DIPROPIONATE
     Indication: Immune-mediated enterocolitis
     Dosage: 5 MG, EVERY 0.5 DAY
     Route: 065
  22. BECLOMETHASONE DIPROPIONATE [Suspect]
     Active Substance: BECLOMETHASONE DIPROPIONATE
     Indication: Colitis ulcerative
     Dosage: 5 MG EVERY 12 HOURS / DEGRESSIVE DOSE
     Route: 061
     Dates: start: 2021
  23. BECLOMETHASONE DIPROPIONATE [Suspect]
     Active Substance: BECLOMETHASONE DIPROPIONATE
     Indication: Immune-mediated enterocolitis
  24. METHYLPREDNISOLONE [Suspect]
     Active Substance: METHYLPREDNISOLONE
     Indication: Colitis
     Dosage: 1.5 MG/KG, DOSE INCREASED
     Route: 042
     Dates: start: 2021
  25. METHYLPREDNISOLONE [Suspect]
     Active Substance: METHYLPREDNISOLONE
     Indication: Colitis ulcerative
     Dosage: 1 MG/KG, HIGH-DOSE
     Route: 042
     Dates: start: 2021
  26. METHYLPREDNISOLONE [Suspect]
     Active Substance: METHYLPREDNISOLONE
     Indication: Autoimmune colitis
     Dosage: 64 MG
     Route: 048
     Dates: start: 2021
  27. METHYLPREDNISOLONE [Suspect]
     Active Substance: METHYLPREDNISOLONE
     Indication: Immune-mediated enterocolitis
     Dosage: DEGRESSIVE DOSE
     Route: 042
     Dates: start: 2021
  28. CORTICOSTEROID NOS [Concomitant]
     Active Substance: CORTICOSTEROID NOS
     Indication: Immune-mediated enterocolitis
     Dosage: UNKNOWN HIGH DOSE
     Route: 065
  29. NIVOLUMAB [Concomitant]
     Active Substance: NIVOLUMAB
     Indication: Malignant melanoma
     Dosage: UNK
     Dates: start: 202012
  30. NIVOLUMAB [Concomitant]
     Active Substance: NIVOLUMAB
     Dosage: UNK
     Dates: start: 202012
  31. NIVOLUMAB [Concomitant]
     Active Substance: NIVOLUMAB
     Dosage: 6 MONTHS
     Route: 065
  32. MYCOPHENOLATE MOFETIL [Concomitant]
     Active Substance: MYCOPHENOLATE MOFETIL
     Indication: Colitis
     Dosage: 500MG TWICE DAILY PO (STARTED AT DAY 20)
     Route: 048
  33. MYCOPHENOLATE MOFETIL [Concomitant]
     Active Substance: MYCOPHENOLATE MOFETIL
     Indication: Autoimmune colitis
     Dosage: 1000MG TWICE DAILY PO (STARTED ON DAY 38)
     Route: 048
  34. MYCOPHENOLATE MOFETIL [Concomitant]
     Active Substance: MYCOPHENOLATE MOFETIL
     Indication: Immune-mediated enterocolitis
     Dosage: UNK
     Route: 065
  35. MYCOPHENOLATE MOFETIL [Concomitant]
     Active Substance: MYCOPHENOLATE MOFETIL
     Dosage: UNK
     Route: 065
  36. BECLOMETHASONE DIPROPIONATE [Concomitant]
     Active Substance: BECLOMETHASONE DIPROPIONATE
     Indication: Colitis
     Dosage: 5 MG, BID
     Route: 061
  37. BECLOMETHASONE DIPROPIONATE [Concomitant]
     Active Substance: BECLOMETHASONE DIPROPIONATE
     Indication: Immune-mediated enterocolitis
     Dosage: 5 MG, 2X/DAY
  38. METHYLPREDNISOLONE [Concomitant]
     Active Substance: METHYLPREDNISOLONE
     Indication: Colitis
     Dosage: 1 MG/KG
     Route: 042
  39. METHYLPREDNISOLONE [Concomitant]
     Active Substance: METHYLPREDNISOLONE
     Indication: Immune-mediated enterocolitis
     Dosage: 1.5 MG/KG; DOSE INCREASED
     Route: 042
  40. METHYLPREDNISOLONE [Concomitant]
     Active Substance: METHYLPREDNISOLONE
     Dosage: 64 MG
     Route: 048
  41. GANCICLOVIR [Concomitant]
     Active Substance: GANCICLOVIR
     Dosage: UNK

REACTIONS (17)
  - Autoimmune colitis [Unknown]
  - Immune-mediated enterocolitis [Recovered/Resolved]
  - Bacterial sepsis [Recovering/Resolving]
  - Cytomegalovirus infection reactivation [Recovering/Resolving]
  - Diarrhoea [Recovered/Resolved]
  - Enterococcal bacteraemia [Recovering/Resolving]
  - Enterococcal infection [Recovering/Resolving]
  - Immunosuppression [Unknown]
  - Infection [Unknown]
  - Large intestine infection [Recovering/Resolving]
  - Mononucleosis syndrome [Recovering/Resolving]
  - Sepsis [Unknown]
  - Staphylococcal bacteraemia [Recovering/Resolving]
  - Staphylococcal infection [Unknown]
  - Drug ineffective [Unknown]
  - Off label use [Unknown]
  - Drug ineffective for unapproved indication [Unknown]

NARRATIVE: CASE EVENT DATE: 20210101
